FAERS Safety Report 12153599 (Version 1)
Quarter: 2016Q1

REPORT INFORMATION
  Report Type: Other
  Country: GB (occurrence: GB)
  Receive Date: 20160307
  Receipt Date: 20160307
  Transmission Date: 20160526
  Serious: No
  Sender: FDA-Public Use
  Company Number: GB-LUPIN PHARMACEUTICALS INC.-2015-01744

PATIENT
  Age: 56 Year
  Sex: Female

DRUGS (1)
  1. MINOCYCLINE [Suspect]
     Active Substance: MINOCYCLINE\MINOCYCLINE HYDROCHLORIDE
     Indication: SKIN INFECTION
     Route: 065

REACTIONS (4)
  - Skin discolouration [Unknown]
  - Scleral discolouration [Unknown]
  - Tooth discolouration [Recovering/Resolving]
  - Nail discolouration [Unknown]
